FAERS Safety Report 8452225-6 (Version None)
Quarter: 2012Q2

REPORT INFORMATION
  Report Type: 
  Country: None (occurrence: None)
  Receive Date: 20120620
  Receipt Date: 20120403
  Transmission Date: 20120825
  Serious: No
  Sender: FDA-Public Use
  Company Number: US-VERTEX PHARMACEUTICALS INC.-AE-2012-004815

PATIENT
  Sex: Female
  Weight: 88.53 kg

DRUGS (7)
  1. LISINOPRIL [Concomitant]
     Indication: HYPERTENSION
     Route: 048
  2. INCIVEK [Suspect]
     Indication: HEPATITIS C
     Route: 048
     Dates: start: 20120315
  3. AMBIEN [Concomitant]
  4. AMLODIPINE [Concomitant]
     Indication: HYPERTENSION
     Route: 048
  5. PEGASYS [Concomitant]
     Indication: HEPATITIS C
     Route: 058
     Dates: start: 20120315
  6. RIBASPHERE [Concomitant]
     Indication: HEPATITIS C
     Route: 048
     Dates: start: 20120315
  7. CELEXA [Concomitant]
     Indication: DEPRESSION

REACTIONS (6)
  - PRURITUS [None]
  - TINNITUS [None]
  - DIARRHOEA [None]
  - MEMORY IMPAIRMENT [None]
  - FATIGUE [None]
  - NAUSEA [None]
